FAERS Safety Report 19174293 (Version 7)
Quarter: 2021Q4

REPORT INFORMATION
  Report Type: Report from Study
  Country: FR (occurrence: FR)
  Receive Date: 20210423
  Receipt Date: 20211223
  Transmission Date: 20220303
  Serious: Yes (Hospitalization)
  Sender: FDA-Public Use
  Company Number: FR-CELGENE-FRA-20210403809

PATIENT
  Age: 62 Year
  Sex: Male
  Weight: 98 kg

DRUGS (4)
  1. LUSPATERCEPT [Suspect]
     Active Substance: LUSPATERCEPT
     Indication: Anaemia of malignant disease
     Route: 058
     Dates: start: 20200309, end: 20200309
  2. LUSPATERCEPT [Suspect]
     Active Substance: LUSPATERCEPT
     Route: 058
     Dates: start: 20210301, end: 20210301
  3. LUSPATERCEPT [Suspect]
     Active Substance: LUSPATERCEPT
     Route: 058
     Dates: start: 20210503, end: 20210503
  4. LUSPATERCEPT [Suspect]
     Active Substance: LUSPATERCEPT
     Dosage: UNKNOWN DOSE
     Route: 058
     Dates: start: 20210614, end: 20210614

REACTIONS (1)
  - Adenocarcinoma pancreas [Not Recovered/Not Resolved]

NARRATIVE: CASE EVENT DATE: 20210115
